FAERS Safety Report 6230402-2 (Version None)
Quarter: 2009Q2

REPORT INFORMATION
  Report Type: 
  Country: None (occurrence: None)
  Receive Date: 20090615
  Receipt Date: 20090317
  Transmission Date: 20091009
  Serious: No
  Sender: FDA-Public Use
  Company Number: US-ABBOTT-09P-163-0562942-00

PATIENT
  Sex: Female
  Weight: 77.18 kg

DRUGS (3)
  1. TRILIPIX [Suspect]
     Indication: LOW DENSITY LIPOPROTEIN INCREASED
     Route: 048
     Dates: start: 20090202, end: 20090311
  2. TRAMADOL HCL [Concomitant]
     Indication: PAIN
     Route: 048
  3. LORATADINE [Concomitant]
     Indication: SINUS HEADACHE
     Route: 048

REACTIONS (6)
  - ARTHRALGIA [None]
  - FATIGUE [None]
  - MIGRAINE [None]
  - PSORIASIS [None]
  - SINUSITIS [None]
  - VISUAL ACUITY REDUCED [None]
